FAERS Safety Report 10652685 (Version 1)
Quarter: 2014Q4

REPORT INFORMATION
  Report Type: Spontaneous
  Country: BR (occurrence: BR)
  Receive Date: 20141215
  Receipt Date: 20141215
  Transmission Date: 20150529
  Serious: Yes (Hospitalization, Other)
  Sender: FDA-Public Use
  Company Number: BR-009507513-1412BRA006751

PATIENT
  Sex: Female
  Weight: 75 kg

DRUGS (3)
  1. LOSARTAN POTASSIUM. [Suspect]
     Active Substance: LOSARTAN POTASSIUM
     Indication: PRODUCT USED FOR UNKNOWN INDICATION
     Dosage: UNK, UNKNOWN
     Route: 048
  2. SIMVASTATIN. [Suspect]
     Active Substance: SIMVASTATIN
     Indication: BLOOD TRIGLYCERIDES
     Dosage: UNK, UNKNOWN
     Route: 048
  3. CARVEDILOL. [Concomitant]
     Active Substance: CARVEDILOL
     Indication: PRODUCT USED FOR UNKNOWN INDICATION
     Dosage: UNK, UNKNOWN

REACTIONS (8)
  - Neoplasm malignant [Unknown]
  - Labyrinthitis [Unknown]
  - Blindness unilateral [Not Recovered/Not Resolved]
  - Drug ineffective [Unknown]
  - Conjunctival haemorrhage [Recovered/Resolved with Sequelae]
  - Uterine disorder [Unknown]
  - Peripheral swelling [Not Recovered/Not Resolved]
  - Cardiac disorder [Unknown]

NARRATIVE: CASE EVENT DATE: 2002
